FAERS Safety Report 5056716-X (Version None)
Quarter: 2006Q2

REPORT INFORMATION
  Report Type: 
  Country: None (occurrence: None)
  Receive Date: 20060616
  Receipt Date: 20060324
  Transmission Date: 20061013
  Serious: No
  Sender: FDA-Public Use
  Company Number: 2006US000648

PATIENT
  Age: 37 Year
  Sex: Female

DRUGS (17)
  1. VESICARE [Suspect]
     Indication: HYPERTONIC BLADDER
     Dosage: SEE IMAGE
     Route: 048
     Dates: start: 20051224, end: 20060201
  2. VESICARE [Suspect]
     Indication: HYPERTONIC BLADDER
     Dosage: SEE IMAGE
     Route: 048
     Dates: start: 20060201
  3. BENAZEPRIL (BENAZEPRIL) [Concomitant]
  4. ZYRTEC [Concomitant]
  5. PHENAZOPYRIDINE HCL TAB [Concomitant]
  6. XOPENEX [Concomitant]
  7. ELESTAT [Concomitant]
  8. AMBIEN [Concomitant]
  9. URIMAX (METHYLTHIONINIUM CHLORIDE, PHENYL SALICYLATE, HYOSCYAMINE SULF [Concomitant]
  10. ADVAIR DISKUS 100/50 [Concomitant]
  11. PAROXETINE [Concomitant]
  12. NITROFURANTOIN [Concomitant]
  13. LASIX [Concomitant]
  14. ELIDEL [Concomitant]
  15. ALBUTEROL [Concomitant]
  16. PATANOL [Concomitant]
  17. CIPRO [Concomitant]

REACTIONS (2)
  - DRY MOUTH [None]
  - VISION BLURRED [None]
